FAERS Safety Report 7692748-0 (Version None)
Quarter: 2011Q3

REPORT INFORMATION
  Report Type: 
  Country: None (occurrence: None)
  Receive Date: 20110819
  Receipt Date: 20110811
  Transmission Date: 20111222
  Serious: Yes (Hospitalization)
  Sender: FDA-Public Use
  Company Number: US-JNJFOC-20080905638

PATIENT
  Sex: Male

DRUGS (2)
  1. MOTRIN [Suspect]
     Indication: INFLUENZA
     Dates: start: 20051022
  2. MOTRIN [Suspect]
     Indication: PAIN
     Dates: start: 20051022

REACTIONS (1)
  - TOXIC EPIDERMAL NECROLYSIS [None]
